FAERS Safety Report 12944499 (Version 1)
Quarter: 2016Q4

REPORT INFORMATION
  Report Type: Spontaneous
  Country: US (occurrence: US)
  Receive Date: 20161116
  Receipt Date: 20161116
  Transmission Date: 20170207
  Serious: Yes (Hospitalization)
  Sender: FDA-Public Use
  Company Number: US-JUBILANT GENERICS LIMITED-1059582

PATIENT
  Age: 91 Year
  Sex: Female
  Weight: 44.55 kg

DRUGS (13)
  1. PREDNISOLONE ACETATE. [Concomitant]
     Active Substance: PREDNISOLONE ACETATE
  2. MEMANTINE. [Concomitant]
     Active Substance: MEMANTINE
  3. ERYTHROMYCIN. [Concomitant]
     Active Substance: ERYTHROMYCIN
  4. COMBIGAN [Concomitant]
     Active Substance: BRIMONIDINE TARTRATE\TIMOLOL MALEATE
  5. LEVOTHYROXINE. [Concomitant]
     Active Substance: LEVOTHYROXINE
  6. B12 INJECTION [Concomitant]
  7. PREDNISONE. [Suspect]
     Active Substance: PREDNISONE
  8. CHOLESTYRAMINE. [Concomitant]
     Active Substance: CHOLESTYRAMINE
  9. SIMVASTATIN. [Concomitant]
     Active Substance: SIMVASTATIN
  10. SERTRALINE [Concomitant]
     Active Substance: SERTRALINE HYDROCHLORIDE
  11. DONEPEZIL HYDROCHLORIDE. [Suspect]
     Active Substance: DONEPEZIL HYDROCHLORIDE
  12. BENADRYL [Suspect]
     Active Substance: DIPHENHYDRAMINE HYDROCHLORIDE
  13. POLY-IRON [Concomitant]
     Active Substance: IRON

REACTIONS (11)
  - Confusional state [Not Recovered/Not Resolved]
  - Dry skin [Not Recovered/Not Resolved]
  - Swelling face [Unknown]
  - Somnolence [Not Recovered/Not Resolved]
  - Excoriation [Not Recovered/Not Resolved]
  - Fall [Recovering/Resolving]
  - Femur fracture [Recovering/Resolving]
  - Wheezing [Recovered/Resolved]
  - Rash papular [Not Recovered/Not Resolved]
  - Hip fracture [Recovering/Resolving]
  - Pruritus generalised [Not Recovered/Not Resolved]

NARRATIVE: CASE EVENT DATE: 20161024
